FAERS Safety Report 12616002 (Version 1)
Quarter: 2016Q3

REPORT INFORMATION
  Report Type: Spontaneous
  Country: IT (occurrence: IT)
  Receive Date: 20160802
  Receipt Date: 20160802
  Transmission Date: 20161109
  Serious: Yes (Other)
  Sender: FDA-Public Use
  Company Number: IT-PFIZER INC-2016354165

PATIENT
  Age: 70 Year
  Sex: Female

DRUGS (1)
  1. SUNITINIB MALATE. [Suspect]
     Active Substance: SUNITINIB MALATE
     Indication: METASTATIC RENAL CELL CARCINOMA
     Dosage: UNK

REACTIONS (4)
  - Posterior reversible encephalopathy syndrome [Recovering/Resolving]
  - Blindness transient [Recovering/Resolving]
  - Stupor [Recovering/Resolving]
  - Generalised tonic-clonic seizure [Recovering/Resolving]
